FAERS Safety Report 17188227 (Version 1)
Quarter: 2019Q4

REPORT INFORMATION
  Report Type: Report from Study
  Country: EG (occurrence: EG)
  Receive Date: 20191221
  Receipt Date: 20191221
  Transmission Date: 20200122
  Serious: Yes (Death, Hospitalization, Other)
  Sender: FDA-Public Use
  Company Number: PHHY2019EG216622

PATIENT
  Age: 53 Year
  Sex: Male

DRUGS (1)
  1. GLIVEC [Suspect]
     Active Substance: IMATINIB MESYLATE
     Indication: CHRONIC MYELOID LEUKAEMIA
     Dosage: 400 MG, QD
     Route: 048
     Dates: start: 2011, end: 20190910

REACTIONS (4)
  - Anaemia [Recovering/Resolving]
  - Hepatic function abnormal [Unknown]
  - Cytogenetic analysis abnormal [Unknown]
  - Renal impairment [Fatal]

NARRATIVE: CASE EVENT DATE: 20190910
